FAERS Safety Report 9330167 (Version 1)
Quarter: 2013Q2

REPORT INFORMATION
  Report Type: Spontaneous
  Country: JP (occurrence: JP)
  Receive Date: 20130604
  Receipt Date: 20130604
  Transmission Date: 20140414
  Serious: Yes (Hospitalization)
  Sender: FDA-Public Use
  Company Number: JP-GILEAD-2013-0076253

PATIENT
  Age: 42 Year
  Sex: Male

DRUGS (3)
  1. TRUVADA [Suspect]
     Indication: HIV INFECTION
  2. ATAZANAVIR [Concomitant]
     Indication: HIV INFECTION
  3. RITONAVIR [Concomitant]
     Indication: HIV INFECTION

REACTIONS (1)
  - Hepatic necrosis [Unknown]
